FAERS Safety Report 6724438-2 (Version None)
Quarter: 2010Q2

REPORT INFORMATION
  Report Type: 
  Country: None (occurrence: None)
  Receive Date: 20100513
  Receipt Date: 20100506
  Transmission Date: 20101027
  Serious: Yes (Other)
  Sender: FDA-Public Use
  Company Number: US-PFIZER INC-2010057605

PATIENT
  Sex: Female
  Weight: 87.982 kg

DRUGS (7)
  1. LIPITOR [Suspect]
     Indication: BLOOD CHOLESTEROL INCREASED
     Dosage: UNK
     Dates: start: 20000101
  2. CRESTOR [Suspect]
     Indication: BLOOD CHOLESTEROL INCREASED
     Dosage: UNK
     Dates: start: 20080101
  3. CARVEDILOL [Concomitant]
     Indication: CARDIAC DISORDER
     Dosage: 6.25 MG, 2X/DAY
  4. ACETAMINOPHEN AND HYDROCODONE BITARTRATE [Concomitant]
     Indication: PAIN
     Dosage: 10/500 4X/DAY
  5. XANAX [Concomitant]
     Indication: ANXIETY
     Dosage: 1 MG, 3X/DAY
     Route: 048
  6. TRAZODONE [Concomitant]
     Indication: DEPRESSION
     Dosage: 50 MG/DAILY
     Route: 048
  7. LYRICA [Concomitant]
     Dosage: 75 MG/DAILY

REACTIONS (2)
  - ATRIOVENTRICULAR BLOCK [None]
  - MUSCULAR WEAKNESS [None]
